FAERS Safety Report 6448285-4 (Version None)
Quarter: 2009Q4

REPORT INFORMATION
  Report Type: 
  Country: None (occurrence: None)
  Receive Date: 20091120
  Receipt Date: 20091109
  Transmission Date: 20100525
  Serious: Yes (Other)
  Sender: FDA-Public Use
  Company Number: US-MYLANLABS-2009S1018769

PATIENT
  Age: 55 Year
  Sex: Male
  Weight: 77.11 kg

DRUGS (5)
  1. FENTANYL CITRATE [Suspect]
     Indication: NEURALGIA
     Dosage: CHANGED Q5D
     Route: 062
     Dates: start: 20090815, end: 20091031
  2. FENTANYL CITRATE [Suspect]
     Dosage: CHANGED PATCHES Q3D
     Route: 062
     Dates: start: 20091031
  3. WARFARIN SODIUM [Concomitant]
  4. PLAVIX [Concomitant]
  5. DIGOXIN [Concomitant]

REACTIONS (8)
  - ANXIETY [None]
  - CHILLS [None]
  - COLD SWEAT [None]
  - DEPENDENCE [None]
  - DRUG WITHDRAWAL SYNDROME [None]
  - HYPERHIDROSIS [None]
  - INAPPROPRIATE SCHEDULE OF DRUG ADMINISTRATION [None]
  - TREMOR [None]
